FAERS Safety Report 6077832-X (Version None)
Quarter: 2009Q1

REPORT INFORMATION
  Report Type: 
  Country: None (occurrence: None)
  Receive Date: 20090213
  Receipt Date: 20090130
  Transmission Date: 20090719
  Serious: Yes (Hospitalization)
  Sender: FDA-Public Use
  Company Number: US-ELI_LILLY_AND_COMPANY-US200901005581

PATIENT
  Sex: Female

DRUGS (1)
  1. FORTEO [Suspect]
     Indication: OSTEOPOROSIS
     Dates: start: 20080101

REACTIONS (4)
  - ARTHRITIS [None]
  - BLOOD PRESSURE DECREASED [None]
  - DEHYDRATION [None]
  - LOSS OF CONSCIOUSNESS [None]
